FAERS Safety Report 8382417-6 (Version None)
Quarter: 2012Q2

REPORT INFORMATION
  Report Type: 
  Country: None (occurrence: None)
  Receive Date: 20120524
  Receipt Date: 20120515
  Transmission Date: 20120825
  Serious: Yes (Other)
  Sender: FDA-Public Use
  Company Number: PHHY2012JP004486

PATIENT
  Sex: Male
  Weight: 54 kg

DRUGS (10)
  1. TOFRANIL [Concomitant]
     Route: 048
  2. ASPIRIN [Concomitant]
     Route: 048
  3. JUVELA [Concomitant]
     Route: 048
  4. LOXONIN [Concomitant]
     Route: 048
  5. EXELON [Suspect]
     Dosage: 9 MG/24 HOURS
     Route: 062
     Dates: start: 20111018, end: 20111128
  6. DEQUALINIUM CHLORIDE [Concomitant]
     Route: 048
  7. EXELON [Suspect]
     Indication: DEMENTIA ALZHEIMER'S TYPE
     Dosage: 4.5 MG/24 HOURS
     Route: 062
     Dates: start: 20110920, end: 20111017
  8. HIRUDOID [Concomitant]
     Route: 061
  9. EXELON [Suspect]
     Dosage: 13.5 MG/24 HOURS
     Route: 062
     Dates: start: 20111129, end: 20111226
  10. EXELON [Suspect]
     Dosage: 18 MG/24 HOURS
     Route: 062
     Dates: start: 20111227, end: 20120117

REACTIONS (11)
  - URINARY RETENTION [None]
  - DRUG ERUPTION [None]
  - RASH [None]
  - PRURITUS [None]
  - PAPULE [None]
  - SKIN EROSION [None]
  - GENERALISED ERYTHEMA [None]
  - ECZEMA [None]
  - SCAB [None]
  - LICHEN PLANUS [None]
  - DERMATITIS [None]
